FAERS Safety Report 10462406 (Version 2)
Quarter: 2014Q3

REPORT INFORMATION
  Report Type: Spontaneous
  Country: IT (occurrence: IT)
  Receive Date: 20140918
  Receipt Date: 20140925
  Transmission Date: 20150326
  Serious: Yes (Other)
  Sender: FDA-Public Use
  Company Number: IT-ASTRAZENECA-2014SE68377

PATIENT
  Age: 29670 Day
  Sex: Male

DRUGS (5)
  1. MATRIFEN [Suspect]
     Active Substance: FENTANYL
     Dosage: 50 MCG/H, UNKNOWN
     Route: 062
     Dates: start: 20140703, end: 20140705
  2. STILNOX [Suspect]
     Active Substance: ZOLPIDEM TARTRATE
     Route: 065
     Dates: start: 20140101, end: 20140703
  3. EN [Suspect]
     Active Substance: DELORAZEPAM
     Dosage: 0.5MG/1ML, 1 DF, UNKNOWN
     Route: 030
     Dates: start: 20140703, end: 20140703
  4. SEROQUEL [Suspect]
     Active Substance: QUETIAPINE FUMARATE
     Route: 048
     Dates: start: 20140101, end: 20140703
  5. CITALOPRAM [Suspect]
     Active Substance: CITALOPRAM HYDROBROMIDE
     Route: 065
     Dates: start: 20140101, end: 20140703

REACTIONS (1)
  - Sopor [Recovering/Resolving]

NARRATIVE: CASE EVENT DATE: 20140703
